FAERS Safety Report 21556571 (Version 2)
Quarter: 2022Q4

REPORT INFORMATION
  Report Type: Report from Study
  Country: IT (occurrence: IT)
  Receive Date: 20221104
  Receipt Date: 20221109
  Transmission Date: 20230113
  Serious: Yes (Other)
  Sender: FDA-Public Use
  Company Number: None

PATIENT
  Age: 48 Year
  Sex: Female

DRUGS (1)
  1. IBUPROFEN [Suspect]
     Active Substance: IBUPROFEN
     Indication: Inflammation
     Dosage: 600 MG 1 DAY (QD) 1 TABLETS OF BRUFEN
     Route: 048
     Dates: start: 20220707, end: 20220707

REACTIONS (4)
  - Circumoral swelling [Recovering/Resolving]
  - Sensation of foreign body [Recovering/Resolving]
  - Pruritus [Recovering/Resolving]
  - Lip oedema [Recovering/Resolving]

NARRATIVE: CASE EVENT DATE: 20220707
